FAERS Safety Report 5337888-6 (Version None)
Quarter: 2007Q2

REPORT INFORMATION
  Report Type: 
  Country: None (occurrence: None)
  Receive Date: 20070530
  Receipt Date: 20070529
  Transmission Date: 20071010
  Serious: Yes (Other)
  Sender: FDA-Public Use
  Company Number: JP-BAYER-200710377BYL

PATIENT
  Age: 77 Year
  Sex: Female

DRUGS (2)
  1. ADALAT [Suspect]
     Dosage: TOTAL DAILY DOSE: 20 MG  UNIT DOSE: 20 MG
     Route: 048
     Dates: start: 20060701, end: 20060901
  2. UNKNOWN DRUGS [Suspect]
     Route: 065
     Dates: start: 20060701, end: 20060901

REACTIONS (3)
  - LEUKOPENIA [None]
  - LIVER DISORDER [None]
  - THROMBOCYTOPENIA [None]
